FAERS Safety Report 21723336 (Version 2)
Quarter: 2023Q1

REPORT INFORMATION
  Report Type: Spontaneous
  Country: US (occurrence: US)
  Receive Date: 20221213
  Receipt Date: 20230103
  Transmission Date: 20230417
  Serious: Yes (Other)
  Sender: FDA-Public Use
  Company Number: US-PFIZER INC-202201360851

PATIENT
  Age: 76 Year
  Sex: Male
  Weight: 95.25 kg

DRUGS (3)
  1. XELJANZ [Suspect]
     Active Substance: TOFACITINIB CITRATE
     Indication: Colitis ulcerative
     Dosage: 10 MG, 2X/DAY(10MG TWICE A DAY)
     Dates: start: 20221119, end: 20221129
  2. BISOPROLOL [Concomitant]
     Active Substance: BISOPROLOL
     Indication: Heart rate increased
     Dosage: 1 DF, 1X/DAY
  3. BISOPROLOL [Concomitant]
     Active Substance: BISOPROLOL
     Indication: Ventricular extrasystoles

REACTIONS (5)
  - Atrial fibrillation [Recovered/Resolved]
  - Deafness [Not Recovered/Not Resolved]
  - Blood pressure increased [Recovered/Resolved]
  - Heart rate increased [Recovered/Resolved]
  - Disease recurrence [Recovered/Resolved]

NARRATIVE: CASE EVENT DATE: 20221128
